FAERS Safety Report 14690025 (Version 2)
Quarter: 2018Q3

REPORT INFORMATION
  Report Type: Spontaneous
  Country: CA (occurrence: CA)
  Receive Date: 20180328
  Receipt Date: 20180727
  Transmission Date: 20181010
  Serious: Yes (Hospitalization, Other)
  Sender: FDA-Public Use
  Company Number: CA-SA-2018SA080012

PATIENT
  Age: 48 Year
  Sex: Female
  Weight: 106 kg

DRUGS (20)
  1. LORAZEPAM. [Suspect]
     Active Substance: LORAZEPAM
     Indication: TARDIVE DYSKINESIA
     Dosage: .5 MG,BID
     Route: 048
     Dates: start: 20170123
  2. PACLITAXEL. [Suspect]
     Active Substance: PACLITAXEL
     Dosage: 243 MG,UNK
     Route: 042
  3. PEGFILGRASTIM [Suspect]
     Active Substance: PEGFILGRASTIM
     Indication: SUPPORTIVE CARE
     Dosage: 6 MG,UNK
     Route: 058
     Dates: start: 20170401, end: 20170401
  4. APREPITANT. [Suspect]
     Active Substance: APREPITANT
     Dosage: 125 MG,QD
     Route: 048
  5. LEVOFLOXACIN. [Suspect]
     Active Substance: LEVOFLOXACIN
     Indication: TARDIVE DYSKINESIA
     Dosage: 500 MG,QD
     Route: 048
     Dates: start: 20170209
  6. PACLITAXEL. [Suspect]
     Active Substance: PACLITAXEL
     Indication: BREAST CANCER
     Dosage: 303 MG,UNK
     Route: 042
     Dates: start: 20170330, end: 20170330
  7. METOCLOPRAMIDE. [Suspect]
     Active Substance: METOCLOPRAMIDE
     Indication: TARDIVE DYSKINESIA
     Dosage: 10 MG,QID
     Route: 048
     Dates: start: 20161208
  8. BETAMETHASONE. [Suspect]
     Active Substance: BETAMETHASONE
     Indication: TARDIVE DYSKINESIA
     Dosage: UNK UNK,BID
     Route: 048
     Dates: start: 20170209
  9. ENOXAPARIN [Suspect]
     Active Substance: ENOXAPARIN
     Indication: TARDIVE DYSKINESIA
     Dosage: 150 MG,QD
     Route: 058
     Dates: start: 20161222
  10. PACLITAXEL. [Suspect]
     Active Substance: PACLITAXEL
     Dosage: 393 MG,UNK
     Route: 042
  11. RANITIDINE. [Suspect]
     Active Substance: RANITIDINE
     Indication: TARDIVE DYSKINESIA
     Dosage: 150 MG,BID
     Route: 048
     Dates: start: 20170112
  12. FILGRASTIM [Suspect]
     Active Substance: FILGRASTIM
     Indication: SUPPORTIVE CARE
     Dosage: 480 MG,QD
     Route: 065
     Dates: start: 20170114
  13. ONDANSETRON [Suspect]
     Active Substance: ONDANSETRON
     Indication: SUPPORTIVE CARE
     Dosage: 8 MG,UNK
     Route: 048
     Dates: start: 20170330, end: 20170330
  14. PROCYTOX [Suspect]
     Active Substance: CYCLOPHOSPHAMIDE
     Indication: BREAST CANCER
     Dosage: 1360 MG,UNK
     Route: 042
     Dates: start: 20161201, end: 20170126
  15. TRASTUZUMAB. [Suspect]
     Active Substance: TRASTUZUMAB
     Indication: TARDIVE DYSKINESIA
     Dosage: 626 MG,UNK
     Route: 065
     Dates: start: 20170330
  16. TRASTUZUMAB. [Suspect]
     Active Substance: TRASTUZUMAB
     Dosage: 866 MG,UNK
     Route: 065
  17. TYLENOL WITH CODEINE [Suspect]
     Active Substance: ACETAMINOPHEN\CODEINE PHOSPHATE
     Indication: TARDIVE DYSKINESIA
     Dosage: 30 MG,Q4H
     Route: 065
     Dates: start: 20170209
  18. APREPITANT. [Suspect]
     Active Substance: APREPITANT
     Indication: SUPPORTIVE CARE
     Dosage: 80 MG,QD
     Route: 048
     Dates: start: 20170331, end: 20170401
  19. DEXAMETHASONE. [Suspect]
     Active Substance: DEXAMETHASONE
     Indication: SUPPORTIVE CARE
     Dosage: 20 MG,QD
     Route: 048
     Dates: start: 20170329, end: 20170330
  20. DOXORUBICIN [Suspect]
     Active Substance: DOXORUBICIN
     Indication: BREAST CANCER
     Dosage: 136 MG,UNK
     Route: 042
     Dates: start: 20161215, end: 20170126

REACTIONS (10)
  - Computerised tomogram thorax abnormal [Recovered/Resolved]
  - Cough [Recovered/Resolved]
  - Fatigue [Recovered/Resolved]
  - Pyrexia [Recovered/Resolved]
  - Rash [Recovered/Resolved]
  - Dyspnoea [Recovered/Resolved]
  - Hypoxia [Recovered/Resolved]
  - Atelectasis [Recovered/Resolved]
  - Gastrointestinal disorder [Recovered/Resolved]
  - Nausea [Recovered/Resolved]

NARRATIVE: CASE EVENT DATE: 20170209
